FAERS Safety Report 4469155-7 (Version None)
Quarter: 2004Q4

REPORT INFORMATION
  Report Type: 
  Country: None (occurrence: None)
  Receive Date: 20041005
  Receipt Date: 20041005
  Transmission Date: 20050328
  Serious: Yes (Other)
  Sender: FDA-Public Use
  Company Number: None

PATIENT
  Sex: Male

DRUGS (9)
  1. VIREAD [Suspect]
     Indication: HAEMATURIA
     Dosage: 300 PO QD
     Route: 048
     Dates: start: 20030613
  2. VIREAD [Suspect]
     Indication: HYPOKALAEMIA
     Dosage: 300 PO QD
     Route: 048
     Dates: start: 20030613
  3. VIREAD [Suspect]
     Indication: PROTEINURIA
     Dosage: 300 PO QD
     Route: 048
     Dates: start: 20030613
  4. KALETRA [Concomitant]
  5. NVP [Concomitant]
  6. SEROSTIM [Concomitant]
  7. TESTOSTERONE [Concomitant]
  8. WELLBUTRIN [Concomitant]
  9. KCL TAB [Concomitant]

REACTIONS (4)
  - BLOOD POTASSIUM DECREASED [None]
  - FANCONI SYNDROME ACQUIRED [None]
  - HAEMATURIA [None]
  - PROTEINURIA [None]
